FAERS Safety Report 9607515 (Version 1)
Quarter: 2013Q4

REPORT INFORMATION
  Report Type: Spontaneous
  Country: US (occurrence: None)
  Receive Date: 20131007
  Receipt Date: 20131007
  Transmission Date: 20140711
  Serious: No
  Sender: FDA-Public Use
  Company Number: None

PATIENT
  Age: 69 Year
  Sex: Female
  Weight: 68.04 kg

DRUGS (1)
  1. SPRIVA [Suspect]
     Indication: EMPHYSEMA
     Dosage: TAKEN BY MOUTH
     Dates: start: 20130901, end: 20131004

REACTIONS (3)
  - Dry mouth [None]
  - Pruritus [None]
  - Kidney small [None]
